FAERS Safety Report 8560434-0 (Version None)
Quarter: 2012Q3

REPORT INFORMATION
  Report Type: 
  Country: None (occurrence: None)
  Receive Date: 20120802
  Receipt Date: 20120717
  Transmission Date: 20120928
  Serious: No
  Sender: FDA-Public Use
  Company Number: US-009507513-1207USA005698

PATIENT

DRUGS (2)
  1. LATANOPROST [Concomitant]
  2. COSOPT [Suspect]
     Dosage: UNK
     Route: 047
     Dates: start: 20120713, end: 20120717

REACTIONS (5)
  - EYELID PTOSIS [None]
  - LACRIMATION INCREASED [None]
  - OCULAR HYPERAEMIA [None]
  - EYE DISCHARGE [None]
  - EYE PAIN [None]
